FAERS Safety Report 18904084 (Version 1)
Quarter: 2021Q1

REPORT INFORMATION
  Report Type: Spontaneous
  Country: US (occurrence: US)
  Receive Date: 20210217
  Receipt Date: 20210217
  Transmission Date: 20210420
  Serious: Yes (Hospitalization, Congenital Anomaly)
  Sender: FDA-Public Use
  Company Number: US-MYLANLABS-2021M1009677

PATIENT
  Sex: Male

DRUGS (1)
  1. METHIMAZOLE. [Suspect]
     Active Substance: METHIMAZOLE
     Indication: BASEDOW^S DISEASE
     Dosage: 10 MILLIGRAM, QID
     Route: 065

REACTIONS (6)
  - Gastric cyst [Unknown]
  - Intestinal cyst [Unknown]
  - Hamartoma [Unknown]
  - Tracheo-oesophageal fistula [Unknown]
  - Gastrointestinal malformation [Unknown]
  - Foetal disorder [Unknown]
